FAERS Safety Report 8940742 (Version 1)
Quarter: 2012Q4

REPORT INFORMATION
  Report Type: 
  Country: ES (occurrence: ES)
  Receive Date: 20121203
  Receipt Date: 20121203
  Transmission Date: 20130627
  Serious: Yes (Other)
  Sender: FDA-Public Use
  Company Number: ES-ROCHE-1161228

PATIENT
  Age: 66 Year
  Sex: Female

DRUGS (8)
  1. RITUXIMAB [Suspect]
     Indication: CHRONIC LYMPHOCYTIC LEUKAEMIA
     Dosage: on day 1 and 375mg/m2 on the first cycle
     Route: 065
  2. FLUDARABINE [Suspect]
     Indication: CHRONIC LYMPHOCYTIC LEUKAEMIA
     Dosage: Initial purine analog therapy
     Route: 042
  3. FLUDARABINE [Suspect]
     Dosage: second purine therapy, on days 1 to 3
     Route: 042
  4. CYCLOPHOSPHAMIDE [Suspect]
     Indication: CHRONIC LYMPHOCYTIC LEUKAEMIA
     Dosage: First purine analog therapy
     Route: 042
  5. CYCLOPHOSPHAMIDE [Suspect]
     Dosage: on days 1 to 3, Second purine analog therapy
     Route: 042
  6. MITOXANTRONE [Suspect]
     Indication: CHRONIC LYMPHOCYTIC LEUKAEMIA
     Dosage: First purine analog
     Route: 042
  7. MITOXANTRONE [Suspect]
     Dosage: On day 1, Second purine analog therapy.
     Route: 042
  8. CLADRIBINE [Suspect]
     Indication: CHRONIC LYMPHOCYTIC LEUKAEMIA
     Dosage: given in initial purin analog therapy
     Route: 065

REACTIONS (1)
  - Refractory cytopenia with multilineage dysplasia [Unknown]
